FAERS Safety Report 5447438-1 (Version None)
Quarter: 2007Q3

REPORT INFORMATION
  Report Type: 
  Country: None (occurrence: None)
  Receive Date: 20070905
  Receipt Date: 20070821
  Transmission Date: 20080115
  Serious: Yes (Other)
  Sender: FDA-Public Use
  Company Number: 8024949

PATIENT
  Age: 24 Year
  Sex: Female

DRUGS (4)
  1. KEPPRA [Suspect]
     Indication: GRAND MAL CONVULSION
     Dosage: 750 MG /D PO
     Route: 048
     Dates: start: 20070227, end: 20070329
  2. KEPPRA [Suspect]
     Indication: GRAND MAL CONVULSION
     Dosage: 500 MG 2/D PO
     Route: 048
     Dates: start: 20070330
  3. RIVATRIL [Concomitant]
  4. SEPRAM [Concomitant]

REACTIONS (3)
  - ABORTION SPONTANEOUS [None]
  - DRUG EXPOSURE DURING PREGNANCY [None]
  - PREGNANCY [None]
